FAERS Safety Report 19954054 (Version 1)
Quarter: 2021Q4

REPORT INFORMATION
  Report Type: Spontaneous
  Country: US (occurrence: US)
  Receive Date: 20211012
  Receipt Date: 20211012
  Transmission Date: 20220303
  Serious: Yes (Hospitalization)
  Sender: FDA-Public Use
  Company Number: None

PATIENT
  Sex: Male

DRUGS (1)
  1. AVONEX [Suspect]
     Active Substance: INTERFERON BETA-1A
     Indication: Multiple sclerosis
     Dosage: OTHER DOSE:30MCG;
     Route: 030
     Dates: start: 20140219

REACTIONS (4)
  - Blood potassium decreased [None]
  - Loss of consciousness [None]
  - Head injury [None]
  - COVID-19 [None]
